FAERS Safety Report 9275326 (Version 1)
Quarter: 2013Q1

REPORT INFORMATION
  Report Type: Spontaneous
  Country: US (occurrence: None)
  Receive Date: 20130131
  Receipt Date: 20130131
  Transmission Date: 20140127
  Serious: Yes (Other)
  Sender: FDA-Public Use
  Company Number: 54973 AE # 1205

PATIENT
  Age: 72 Year
  Sex: Female

DRUGS (1)
  1. HYLAND^S LEG CRAMPS PM TABLETS [Suspect]
     Indication: MUSCLE SPASMS
     Dosage: 2-3 TABS HS X 2 DAYS

REACTIONS (5)
  - Urticaria [None]
  - Face oedema [None]
  - Tongue oedema [None]
  - Pharyngeal oedema [None]
  - Dyspnoea [None]
